FAERS Safety Report 4789875-4 (Version None)
Quarter: 2005Q3

REPORT INFORMATION
  Report Type: 
  Country: None (occurrence: None)
  Receive Date: 20050914
  Receipt Date: 20040920
  Transmission Date: 20060218
  Serious: Yes (Disabling)
  Sender: FDA-Public Use
  Company Number: 163-20785-04090577

PATIENT
  Age: 63 Year
  Sex: Female

DRUGS (1)
  1. THALIDOMIDE (THALIDOMIDE) (100 MILLIGRAM, CAPSULES) [Suspect]
     Indication: MYELODYSPLASTIC SYNDROME
     Dosage: MAXIMUM DOSE UP TO 200 MG/DAY, ORAL
     Route: 048
     Dates: start: 20040106

REACTIONS (1)
  - NERVE INJURY [None]
